FAERS Safety Report 8831915 (Version 2)
Quarter: 2012Q4

REPORT INFORMATION
  Report Type: 
  Country: US (occurrence: US)
  Receive Date: 20121008
  Receipt Date: 20121126
  Transmission Date: 20130627
  Serious: Yes (Life-Threatening, Other)
  Sender: FDA-Public Use
  Company Number: US-ASTRAZENECA-2012SE75325

PATIENT
  Age: 65 Year
  Sex: Female

DRUGS (1)
  1. ACCOLATE [Suspect]
     Route: 048

REACTIONS (3)
  - Apparent death [Unknown]
  - Cardiac arrest [Unknown]
  - Circulatory collapse [Unknown]
